FAERS Safety Report 6802511-8 (Version None)
Quarter: 2010Q2

REPORT INFORMATION
  Report Type: 
  Country: None (occurrence: None)
  Receive Date: 20100628
  Receipt Date: 20100616
  Transmission Date: 20101027
  Serious: No
  Sender: FDA-Public Use
  Company Number: US-JNJFOC-20100605428

PATIENT
  Sex: Male
  Weight: 115.67 kg

DRUGS (15)
  1. SANDOZ FENTANYL TRANSDERMAL SYSTEM [Suspect]
     Indication: NEURALGIA
  2. SANDOZ FENTANYL TRANSDERMAL SYSTEM [Suspect]
     Route: 062
  3. FENTANYL-100 [Suspect]
     Indication: NEURALGIA
     Route: 062
  4. LYRICA [Suspect]
     Indication: DRUG USE FOR UNKNOWN INDICATION
     Route: 048
  5. SKELAXIN [Concomitant]
     Indication: MUSCLE RELAXANT THERAPY
     Route: 048
  6. NEURONTIN [Concomitant]
     Indication: NEURALGIA
     Route: 048
  7. CYMBALTA [Concomitant]
     Indication: BACK PAIN
     Route: 048
  8. TRAZODONE HYDROCHLORIDE [Concomitant]
     Indication: SLEEP DISORDER
     Dosage: 200 TO 300 MG TABLET 100MG AT BED TIME AS NEEDED.
     Route: 048
  9. CROMOGLICIC ACID [Concomitant]
     Indication: MULTIPLE ALLERGIES
     Dosage: 0.4% SOLUTION
     Route: 047
  10. FLONASE [Concomitant]
     Indication: MULTIPLE ALLERGIES
     Dosage: 50MCG TWICE A DAY
     Route: 045
  11. CLARITIN [Concomitant]
     Indication: MULTIPLE ALLERGIES
     Route: 048
  12. LEVOTHYROXINE SODIUM [Concomitant]
     Indication: THYROID DISORDER
     Dosage: 25MCG TABLET DAILY ORALLY
     Route: 048
  13. OXYCODONE HCL [Concomitant]
     Indication: BREAKTHROUGH PAIN
     Dosage: AS NEEDED
     Route: 048
  14. LACTULOSE [Concomitant]
     Indication: CONSTIPATION
     Dosage: 10GM TO 15ML AS NEEDED ORALLY
     Route: 048
  15. IBUPROFEN [Concomitant]
     Indication: PAIN
     Dosage: AS NEEDED
     Route: 048

REACTIONS (8)
  - COLD SWEAT [None]
  - DRUG DOSE OMISSION [None]
  - DYSURIA [None]
  - EYE DISORDER [None]
  - GASTRIC DISORDER [None]
  - MEDICATION ERROR [None]
  - VITREOUS FLOATERS [None]
  - WRONG TECHNIQUE IN DRUG USAGE PROCESS [None]
